FAERS Safety Report 4372282-6 (Version None)
Quarter: 2004Q2

REPORT INFORMATION
  Report Type: 
  Country: None (occurrence: None)
  Receive Date: 20040602
  Receipt Date: 20040526
  Transmission Date: 20050107
  Serious: Yes (Hospitalization)
  Sender: FDA-Public Use
  Company Number: 2003161798DE

PATIENT
  Age: 55 Year
  Sex: Male
  Weight: 76 kg

DRUGS (1)
  1. ZYVOXID (LINEZOLID) SOLUTION, STERILE [Suspect]
     Indication: ENDOCARDITIS BACTERIAL
     Dosage: 600 MG, BID
     Dates: start: 20020712, end: 20021003

REACTIONS (7)
  - FATIGUE [None]
  - HAEMOGLOBIN DECREASED [None]
  - NAUSEA [None]
  - PAIN IN EXTREMITY [None]
  - POLYNEUROPATHY [None]
  - VISUAL FIELD DEFECT [None]
  - VOMITING [None]
